FAERS Safety Report 6651644-8 (Version None)
Quarter: 2010Q1

REPORT INFORMATION
  Report Type: 
  Country: None (occurrence: None)
  Receive Date: 20100322
  Receipt Date: 20100311
  Transmission Date: 20100710
  Serious: Yes (Death, Other)
  Sender: FDA-Public Use
  Company Number: 2010SP016004

PATIENT

DRUGS (2)
  1. IMPLANON [Suspect]
     Indication: DRUG EXPOSURE DURING PREGNANCY
     Dosage: TRPL
     Route: 064
  2. RIVOTRIL (CLONAZEPAM) [Suspect]
     Indication: DRUG EXPOSURE DURING PREGNANCY
     Dosage: TRPL
     Route: 064

REACTIONS (3)
  - CONGENITAL ANOMALY [None]
  - FOETAL HEART RATE ABNORMAL [None]
  - MATERNAL DRUGS AFFECTING FOETUS [None]
